FAERS Safety Report 7522554-9 (Version None)
Quarter: 2011Q2

REPORT INFORMATION
  Report Type: 
  Country: None (occurrence: None)
  Receive Date: 20110603
  Receipt Date: 20110523
  Transmission Date: 20111010
  Serious: Yes (Other)
  Sender: FDA-Public Use
  Company Number: SE-AMGEN-SWESP2011021100

PATIENT
  Age: 64 Year
  Sex: Male
  Weight: 70 kg

DRUGS (2)
  1. ENBREL [Suspect]
     Indication: RHEUMATOID ARTHRITIS
     Dosage: ONE INJECTION WEEKLY
     Route: 058
  2. METHOTREXATE SODIUM [Suspect]
     Dosage: 10 MG, WEEKLY
     Dates: end: 20110407

REACTIONS (1)
  - INTERSTITIAL LUNG DISEASE [None]
